FAERS Safety Report 8036181-0 (Version None)
Quarter: 2012Q1

REPORT INFORMATION
  Report Type: 
  Country: None (occurrence: None)
  Receive Date: 20120111
  Receipt Date: 20111227
  Transmission Date: 20120608
  Serious: Yes (Other)
  Sender: FDA-Public Use
  Company Number: PHHY2010US78294

PATIENT
  Sex: Female

DRUGS (1)
  1. DIOVAN HCT [Suspect]
     Dosage: UNK
     Dates: start: 20100801

REACTIONS (4)
  - EYE DISORDER [None]
  - LOWER LIMB FRACTURE [None]
  - FALL [None]
  - LIP INJURY [None]
